FAERS Safety Report 10638349 (Version 2)
Quarter: 2015Q1

REPORT INFORMATION
  Report Type: Spontaneous
  Country: US (occurrence: US)
  Receive Date: 20141208
  Receipt Date: 20150122
  Transmission Date: 20150720
  Serious: Yes (Death, Hospitalization, Other)
  Sender: FDA-Public Use
  Company Number: US-GLAXOSMITHKLINE-US2014026051

PATIENT
  Sex: Male

DRUGS (13)
  1. ASPIRIN. [Concomitant]
     Active Substance: ASPIRIN
  2. ONE A DAY VITAMIN FOR MEN [Concomitant]
  3. TRICOR [Concomitant]
     Active Substance: FENOFIBRATE
  4. ADVAIR DISKUS [Suspect]
     Active Substance: FLUTICASONE PROPIONATE\SALMETEROL XINAFOATE
     Indication: CHRONIC OBSTRUCTIVE PULMONARY DISEASE
     Dosage: 1 PUFF(S), BID
     Route: 055
     Dates: start: 2008, end: 20141031
  5. UNKNOWN ACID REDUCER [Concomitant]
  6. DIOVAN HCT [Concomitant]
     Active Substance: HYDROCHLOROTHIAZIDE\VALSARTAN
  7. WARFARIN [Concomitant]
     Active Substance: WARFARIN
  8. LORAZEPAM. [Concomitant]
     Active Substance: LORAZEPAM
  9. OXYGEN. [Concomitant]
     Active Substance: OXYGEN
  10. BYSTOLIC [Concomitant]
     Active Substance: NEBIVOLOL HYDROCHLORIDE
  11. STOOL SOFTENER [Concomitant]
     Active Substance: DOCUSATE CALCIUM
  12. FISH OIL [Concomitant]
     Active Substance: FISH OIL
  13. VITAMIN D3 [Concomitant]
     Active Substance: CHOLECALCIFEROL

REACTIONS (7)
  - Haemoglobin decreased [Unknown]
  - Staphylococcal infection [Fatal]
  - Pneumonia [Unknown]
  - Ankle operation [Unknown]
  - Pyrexia [Unknown]
  - Dehydration [Unknown]
  - Rehabilitation therapy [Unknown]
